FAERS Safety Report 18406756 (Version 2)
Quarter: 2022Q4

REPORT INFORMATION
  Report Type: Report from Study
  Country: US (occurrence: US)
  Receive Date: 20201020
  Receipt Date: 20221115
  Transmission Date: 20230112
  Serious: No
  Sender: FDA-Public Use
  Company Number: US-NOVARTISTESTPH-NVSC2020US279913

PATIENT
  Sex: Male

DRUGS (3)
  1. XIIDRA [Suspect]
     Active Substance: LIFITEGRAST
     Indication: Dry eye
     Dosage: UNK
     Route: 065
  2. XIIDRA [Suspect]
     Active Substance: LIFITEGRAST
     Indication: Vision blurred
     Dosage: 5 %, BID
     Route: 047
     Dates: start: 20221018, end: 20221107
  3. XIIDRA [Suspect]
     Active Substance: LIFITEGRAST
     Indication: Reading disorder

REACTIONS (4)
  - Eye disorder [Unknown]
  - Manufacturing materials issue [Unknown]
  - Product dispensing issue [Unknown]
  - Product container issue [Unknown]
